FAERS Safety Report 24372426 (Version 1)
Quarter: 2024Q3

REPORT INFORMATION
  Report Type: Spontaneous
  Country: ES (occurrence: ES)
  Receive Date: 20240927
  Receipt Date: 20240927
  Transmission Date: 20241017
  Serious: Yes (Hospitalization)
  Sender: RANBAXY
  Company Number: ES-AEMPS-1552206

PATIENT
  Age: 75 Year
  Sex: Male

DRUGS (5)
  1. OLANZAPINE [Interacting]
     Active Substance: OLANZAPINE
     Indication: Depression
     Dosage: 15 MILLIGRAM, DAILY, 15 MG FROM 27/01/2024
     Route: 048
     Dates: start: 20240127, end: 20240304
  2. OLANZAPINE [Interacting]
     Active Substance: OLANZAPINE
     Dosage: 20 MILLIGRAM, DAILY, 0-0-1
     Route: 048
     Dates: start: 20240305, end: 20240422
  3. OLANZAPINE [Interacting]
     Active Substance: OLANZAPINE
     Dosage: 2.5 MILLIGRAM, DAILY, 2.5 MG FROM 25/07/2023
     Route: 048
     Dates: start: 20230725, end: 20240126
  4. ANAFRANIL [Interacting]
     Active Substance: CLOMIPRAMINE HYDROCHLORIDE
     Indication: Depression
     Dosage: 75 MILLIGRAM, BID, 1-0-1
     Route: 048
     Dates: start: 20230720, end: 20240422
  5. TRAZODONE HYDROCHLORIDE [Interacting]
     Active Substance: TRAZODONE HYDROCHLORIDE
     Indication: Depression
     Dosage: 200 MILLIGRAM, DAILY, 0-0-2
     Route: 048
     Dates: start: 20231106, end: 20240422

REACTIONS (1)
  - Hyponatraemia [Recovered/Resolved]

NARRATIVE: CASE EVENT DATE: 20240420
